FAERS Safety Report 16758122 (Version 1)
Quarter: 2019Q3

REPORT INFORMATION
  Report Type: Spontaneous
  Country: US (occurrence: US)
  Receive Date: 20190830
  Receipt Date: 20190830
  Transmission Date: 20191005
  Serious: No
  Sender: FDA-Public Use
  Company Number: PHEH2019US035840

PATIENT
  Sex: Female

DRUGS (3)
  1. AFINITOR [Suspect]
     Active Substance: EVEROLIMUS
     Indication: GIGANTISM
  2. AFINITOR [Suspect]
     Active Substance: EVEROLIMUS
     Indication: ACROMEGALY
     Dosage: 10 MG, QD
     Route: 048
     Dates: start: 201908
  3. AFINITOR [Suspect]
     Active Substance: EVEROLIMUS
     Indication: END STAGE RENAL DISEASE

REACTIONS (2)
  - Stomatitis [Not Recovered/Not Resolved]
  - Nausea [Not Recovered/Not Resolved]
